FAERS Safety Report 10703495 (Version 1)
Quarter: 2015Q1

REPORT INFORMATION
  Report Type: Spontaneous
  Country: US (occurrence: US)
  Receive Date: 20150112
  Receipt Date: 20150112
  Transmission Date: 20150721
  Serious: Yes (Other)
  Sender: FDA-Public Use
  Company Number: US-RANBAXY-2014US-91362

PATIENT

DRUGS (3)
  1. ACETAMINOPHEN. [Suspect]
     Active Substance: ACETAMINOPHEN
     Indication: CARPAL TUNNEL SYNDROME
     Dosage: 1 DF, BID
     Route: 065
     Dates: start: 201404
  2. GLUCOSAMINE CHOMDROTIN [Suspect]
     Active Substance: CHONDROITIN SULFATE (BOVINE)\GLUCOSAMINE HYDROCHLORIDE
     Indication: CARPAL TUNNEL SYNDROME
     Dosage: UNK
     Route: 065
  3. ASPIRIN. [Suspect]
     Active Substance: ASPIRIN
     Indication: PRODUCT USED FOR UNKNOWN INDICATION
     Dosage: UNK
     Route: 065

REACTIONS (5)
  - Swollen tongue [Unknown]
  - Lip swelling [Unknown]
  - Swelling face [Unknown]
  - Dry mouth [Unknown]
  - Sleep disorder [Unknown]

NARRATIVE: CASE EVENT DATE: 20141110
